FAERS Safety Report 4276556-9 (Version None)
Quarter: 2004Q1

REPORT INFORMATION
  Report Type: 
  Country: None (occurrence: None)
  Receive Date: 20040120
  Receipt Date: 20040106
  Transmission Date: 20041129
  Serious: Yes (Hospitalization)
  Sender: FDA-Public Use
  Company Number: 2004001063

PATIENT
  Age: 41 Year
  Sex: Female

DRUGS (6)
  1. GEODON [Suspect]
     Indication: TARDIVE DYSKINESIA
     Dosage: ORAL
     Route: 048
  2. HALOPERIDOL [Suspect]
     Indication: ILL-DEFINED DISORDER
  3. RISPERIDONE [Suspect]
     Indication: TARDIVE DYSKINESIA
  4. OLANZAPINE [Suspect]
     Indication: TARDIVE DYSKINESIA
  5. QUETIAPINE (QUETIAPINE) [Suspect]
     Indication: TARDIVE DYSKINESIA
  6. VALPROIC ACID [Concomitant]

REACTIONS (6)
  - CONDITION AGGRAVATED [None]
  - ELECTROCARDIOGRAM ABNORMAL [None]
  - HYPERPROLACTINAEMIA [None]
  - PSYCHOTIC DISORDER [None]
  - TARDIVE DYSKINESIA [None]
  - WEIGHT INCREASED [None]
